FAERS Safety Report 4866771-5 (Version None)
Quarter: 2005Q4

REPORT INFORMATION
  Report Type: 
  Country: None (occurrence: None)
  Receive Date: 20051221
  Receipt Date: 20051205
  Transmission Date: 20060501
  Serious: Yes (Hospitalization)
  Sender: FDA-Public Use
  Company Number: 218600

PATIENT
  Age: 48 Year
  Sex: Female

DRUGS (5)
  1. HERCEPTIN [Suspect]
     Indication: BREAST CANCER METASTATIC
     Dates: end: 20050929
  2. HERCEPTIN [Suspect]
     Indication: BREAST CANCER METASTATIC
     Dates: start: 20050415
  3. TAXOL [Suspect]
     Indication: BREAST CANCER METASTATIC
     Dates: start: 20050415, end: 20050615
  4. VINORELBINE TARTRATE [Suspect]
     Indication: BREAST CANCER METASTATIC
     Dates: end: 20050929
  5. CORTICOSTEROID (CORTICOSTEROID NOS) [Concomitant]

REACTIONS (6)
  - HEPATIC STEATOSIS [None]
  - HYPOGLYCAEMIA [None]
  - LIVER FUNCTION TEST ABNORMAL [None]
  - PANCREATIC NECROSIS [None]
  - PANCREATITIS ACUTE [None]
  - SEPSIS [None]
